FAERS Safety Report 4492932-3 (Version None)
Quarter: 2004Q4

REPORT INFORMATION
  Report Type: 
  Country: None (occurrence: None)
  Receive Date: 20041102
  Receipt Date: 20041015
  Transmission Date: 20050328
  Serious: Yes (Death)
  Sender: FDA-Public Use
  Company Number: 9039

PATIENT
  Age: 30 Month
  Sex: Female

DRUGS (1)
  1. ACETYLCYSTEINE [Suspect]
     Indication: OVERDOSE
     Dosage: 39207 MG TOTAL IV
     Route: 042

REACTIONS (11)
  - ANOXIC ENCEPHALOPATHY [None]
  - BRAIN DEATH [None]
  - BRAIN HERNIATION [None]
  - BRAIN OEDEMA [None]
  - GAZE PALSY [None]
  - INTRACRANIAL PRESSURE INCREASED [None]
  - MEDICATION ERROR [None]
  - MYOCLONUS [None]
  - OVERDOSE [None]
  - RESPIRATORY ARREST [None]
  - STATUS EPILEPTICUS [None]
